FAERS Safety Report 16224759 (Version 2)
Quarter: 2019Q2

REPORT INFORMATION
  Report Type: Spontaneous
  Country: US (occurrence: US)
  Receive Date: 20190422
  Receipt Date: 20190521
  Transmission Date: 20190711
  Serious: Yes (Hospitalization)
  Sender: FDA-Public Use
  Company Number: US-JNJFOC-20190430785

PATIENT
  Age: 40 Year
  Sex: Male
  Weight: 205.93 kg

DRUGS (1)
  1. INVOKANA [Suspect]
     Active Substance: CANAGLIFLOZIN
     Indication: DIABETES MELLITUS INADEQUATE CONTROL
     Route: 048

REACTIONS (2)
  - Cellulitis [Recovering/Resolving]
  - Perirectal abscess [Unknown]

NARRATIVE: CASE EVENT DATE: 201810
